FAERS Safety Report 5903638-5 (Version None)
Quarter: 2008Q3

REPORT INFORMATION
  Report Type: 
  Country: None (occurrence: None)
  Receive Date: 20080930
  Receipt Date: 20080918
  Transmission Date: 20090109
  Serious: Yes (Other)
  Sender: FDA-Public Use
  Company Number: DE-PFIZER INC-2008079458

PATIENT
  Sex: Female

DRUGS (1)
  1. CLINDAMYCIN HYDROCHLORIDE [Suspect]
     Indication: TOOTH ABSCESS
     Route: 048

REACTIONS (3)
  - DYSPHAGIA [None]
  - PRURITUS [None]
  - RASH [None]
